FAERS Safety Report 10469144 (Version 1)
Quarter: 2014Q3

REPORT INFORMATION
  Report Type: Spontaneous
  Country: US (occurrence: None)
  Receive Date: 20140829
  Receipt Date: 20140829
  Transmission Date: 20150326
  Serious: Yes (Hospitalization)
  Sender: FDA-Public Use
  Company Number: PHEH2014US001418

PATIENT
  Age: 59 Year
  Sex: Female

DRUGS (1)
  1. EXFORGE [Suspect]
     Active Substance: AMLODIPINE BESYLATE\VALSARTAN
     Dosage: 1 DF (160 MG VALSA/5 MG AMLO), QD

REACTIONS (3)
  - Abdominal pain upper [None]
  - Hypertension [None]
  - Pain [None]
